FAERS Safety Report 10652436 (Version 2)
Quarter: 2014Q4

REPORT INFORMATION
  Report Type: Spontaneous
  Country: FR (occurrence: FR)
  Receive Date: 20141215
  Receipt Date: 20141222
  Transmission Date: 20150529
  Serious: Yes (Hospitalization, Other)
  Sender: FDA-Public Use
  Company Number: FR-TEVA-528577ISR

PATIENT
  Age: 55 Year
  Sex: Male

DRUGS (12)
  1. SKENAN [Concomitant]
     Active Substance: MORPHINE SULFATE
     Dosage: 60 MILLIGRAM DAILY; USUAL TREATMENT. PROLONGED RELEASED FORM
     Route: 048
  2. SEVREDOL [Concomitant]
     Active Substance: MORPHINE
     Dosage: 60 MILLIGRAM DAILY; USUAL TREATMENT
     Route: 048
  3. FLUOROURACILE WINTHROP 50 MG/ML [Concomitant]
     Dosage: 2400 MG DURING TWO DAYS EVERY 15 DAYS. THREE COURSES OF LV5FU2 PROTOCOL.
     Route: 042
     Dates: start: 20140918, end: 20141018
  4. TRANSIPEG [Concomitant]
     Active Substance: POLYETHYLENE GLYCOL 3350
     Dosage: 2 DOSAGE FORMS DAILY; USUAL TREATMENT
     Route: 048
  5. LEVOFOLINATE DE CALCIUM [Concomitant]
     Dosage: THREE COURSES OF LV5FU2 PROTOCOL.
     Dates: start: 20140918, end: 20141017
  6. DOLIPRANE [Concomitant]
     Active Substance: ACETAMINOPHEN
     Dosage: 3 GRAM DAILY; USUAL TREATMENT
     Route: 048
  7. MIZOLLEN [Concomitant]
     Active Substance: MIZOLASTINE
     Dosage: 10 MILLIGRAM DAILY; USUAL TREATMENT
     Route: 048
  8. EDUCTYL ADULTES [Concomitant]
     Dosage: 1 DOSAGE FORMS DAILY; USUAL TREATMENT
     Route: 054
  9. LARGACTIL 4 % [Concomitant]
     Dosage: 16 GTT DAILY; USUAL TREATMENT
     Route: 048
  10. TRIMEBUTINE ARROW [Concomitant]
     Dosage: 300 MILLIGRAM DAILY; USUAL TREATMENT
     Route: 048
  11. CISPLATINE TEVA 1 MG/1 ML [Suspect]
     Active Substance: CISPLATIN
     Indication: ADENOCARCINOMA GASTRIC
     Dosage: THREE COURSES OF CHEMOTHERAPY
     Route: 041
     Dates: start: 20140918, end: 20141017
  12. LASILIX FAIBLE 20 MG [Concomitant]
     Active Substance: FUROSEMIDE
     Dosage: 40 MILLIGRAM DAILY; USUAL TREATMENT
     Route: 048

REACTIONS (4)
  - Cardiac failure [Unknown]
  - Acute kidney injury [Unknown]
  - Oedema peripheral [Unknown]
  - Hepatorenal syndrome [Unknown]

NARRATIVE: CASE EVENT DATE: 20141016
